FAERS Safety Report 4386765-6 (Version None)
Quarter: 2004Q2

REPORT INFORMATION
  Report Type: 
  Country: None (occurrence: None)
  Receive Date: 20040629
  Receipt Date: 20031212
  Transmission Date: 20050107
  Serious: Yes (Hospitalization)
  Sender: FDA-Public Use
  Company Number: CH-MERCK-0312CHE00023

PATIENT
  Age: 80 Year
  Sex: Female

DRUGS (6)
  1. ASPIRIN [Suspect]
     Indication: PROPHYLAXIS
     Route: 048
     Dates: end: 20031111
  2. CALCIUM DOBESILATE [Concomitant]
     Route: 048
  3. DICLOFENAC SODIUM [Suspect]
     Indication: PAIN
     Route: 048
     Dates: end: 20031111
  4. NADOLOL [Concomitant]
     Route: 048
  5. PRAVASTATIN SODIUM [Concomitant]
     Route: 048
  6. VIOXX [Suspect]
     Indication: PAIN
     Route: 048
     Dates: end: 20031111

REACTIONS (3)
  - ANAEMIA [None]
  - GASTRITIS EROSIVE [None]
  - MELAENA [None]
